FAERS Safety Report 10438286 (Version 1)
Quarter: 2014Q3

REPORT INFORMATION
  Report Type: Spontaneous
  Country: US (occurrence: US)
  Receive Date: 20140908
  Receipt Date: 20140908
  Transmission Date: 20150326
  Serious: Yes (Hospitalization)
  Sender: FDA-Public Use
  Company Number: US-GLAXOSMITHKLINE-A1087502A

PATIENT
  Age: 53 Year
  Sex: Female

DRUGS (28)
  1. VENTOLIN [Suspect]
     Active Substance: ALBUTEROL SULFATE
     Indication: ASTHMA
     Dosage: 2PUFF FOUR TIMES PER DAY
     Route: 055
  2. AMLODIPINE [Concomitant]
     Active Substance: AMLODIPINE BESYLATE
  3. PRIMIDONE. [Concomitant]
     Active Substance: PRIMIDONE
  4. LORATADINE. [Concomitant]
     Active Substance: LORATADINE
  5. DUONEB [Concomitant]
     Active Substance: ALBUTEROL SULFATE\IPRATROPIUM BROMIDE
  6. BREO ELLIPTA [Suspect]
     Active Substance: FLUTICASONE FUROATE\VILANTEROL TRIFENATATE
     Indication: CHRONIC OBSTRUCTIVE PULMONARY DISEASE
     Route: 065
  7. MONTELUKAST [Concomitant]
     Active Substance: MONTELUKAST SODIUM
  8. DILTIAZEM [Concomitant]
     Active Substance: DILTIAZEM
  9. LAMOTRIGINE. [Concomitant]
     Active Substance: LAMOTRIGINE
  10. OXYCODONE/APAP [Concomitant]
     Active Substance: ACETAMINOPHEN\OXYCODONE HYDROCHLORIDE
  11. SALINE SOLUTION [Concomitant]
     Active Substance: SODIUM CHLORIDE
  12. SPIRONOLACTONE. [Concomitant]
     Active Substance: SPIRONOLACTONE
  13. LASIX [Concomitant]
     Active Substance: FUROSEMIDE
  14. PROBIOTIC [Concomitant]
     Active Substance: PROBIOTICS NOS
  15. LEVOTHYROXINE [Concomitant]
     Active Substance: LEVOTHYROXINE
  16. VALIUM [Concomitant]
     Active Substance: DIAZEPAM
  17. OMEPRAZOLE. [Concomitant]
     Active Substance: OMEPRAZOLE
  18. PROCHLORPERAZINE. [Concomitant]
     Active Substance: PROCHLORPERAZINE
  19. GABAPENTIN. [Concomitant]
     Active Substance: GABAPENTIN
  20. SPIRIVA [Concomitant]
     Active Substance: TIOTROPIUM BROMIDE MONOHYDRATE
  21. PROMETHAZINE [Concomitant]
     Active Substance: PROMETHAZINE\PROMETHAZINE HYDROCHLORIDE
  22. MUPIROCIN. [Concomitant]
     Active Substance: MUPIROCIN
  23. ADVAIR HFA [Suspect]
     Active Substance: FLUTICASONE PROPIONATE\SALMETEROL XINAFOATE
     Indication: CHRONIC OBSTRUCTIVE PULMONARY DISEASE
     Dosage: 1PUFF TWICE PER DAY
     Route: 055
     Dates: end: 20140723
  24. CYMBALTA [Concomitant]
     Active Substance: DULOXETINE HYDROCHLORIDE
  25. TOPIRAMATE. [Concomitant]
     Active Substance: TOPIRAMATE
  26. NAPROXEN. [Concomitant]
     Active Substance: NAPROXEN
  27. BACTRIM [Concomitant]
     Active Substance: SULFAMETHOXAZOLE\TRIMETHOPRIM
  28. MOXIFLOXACIN [Concomitant]
     Active Substance: MOXIFLOXACIN

REACTIONS (9)
  - Pyrexia [Recovering/Resolving]
  - Tremor [Recovering/Resolving]
  - Anxiety [Recovering/Resolving]
  - Medical induction of coma [Recovering/Resolving]
  - Familial tremor [Recovering/Resolving]
  - Oxygen saturation decreased [Recovering/Resolving]
  - Nervousness [Recovering/Resolving]
  - Pneumonia [Recovering/Resolving]
  - Staphylococcal infection [Recovering/Resolving]

NARRATIVE: CASE EVENT DATE: 2014
